FAERS Safety Report 21620256 (Version 1)
Quarter: 2022Q4

REPORT INFORMATION
  Report Type: Spontaneous
  Country: US (occurrence: None)
  Receive Date: 20221121
  Receipt Date: 20221121
  Transmission Date: 20230112
  Serious: No
  Sender: FDA-Public Use
  Company Number: 2022A360919

PATIENT
  Sex: Female

DRUGS (1)
  1. TAGRISSO [Suspect]
     Active Substance: OSIMERTINIB
     Indication: Lung neoplasm malignant
     Dosage: UNKNOWN
     Route: 048

REACTIONS (4)
  - Gastrooesophageal reflux disease [Unknown]
  - Cough [Unknown]
  - Inflammation [Unknown]
  - Hypoacusis [Not Recovered/Not Resolved]
